FAERS Safety Report 5197772-8 (Version None)
Quarter: 2006Q4

REPORT INFORMATION
  Report Type: 
  Country: None (occurrence: None)
  Receive Date: 20061228
  Receipt Date: 20060123
  Transmission Date: 20070319
  Serious: Yes (Other)
  Sender: FDA-Public Use
  Company Number: 2006BI018288

PATIENT
  Sex: Female

DRUGS (3)
  1. AVONEX [Suspect]
     Indication: MULTIPLE SCLEROSIS
  2. AMOXICILLIN [Concomitant]
  3. PENICILLIN [Concomitant]

REACTIONS (3)
  - COLITIS [None]
  - DRUG HYPERSENSITIVITY [None]
  - DRUG INTERACTION [None]
